FAERS Safety Report 7479840-0 (Version None)
Quarter: 2011Q2

REPORT INFORMATION
  Report Type: 
  Country: None (occurrence: None)
  Receive Date: 20110515
  Receipt Date: 20110502
  Transmission Date: 20111010
  Serious: Yes (Hospitalization)
  Sender: FDA-Public Use
  Company Number: DE-MYLANLABS-2011S1009256

PATIENT
  Sex: Female

DRUGS (3)
  1. AZATHIOPRINE [Suspect]
     Indication: CROHN'S DISEASE
  2. BUDESONIDE [Concomitant]
     Indication: CROHN'S DISEASE
  3. MESALAMINE [Concomitant]
     Indication: CROHN'S DISEASE

REACTIONS (1)
  - MELANOCYTIC NAEVUS [None]
